FAERS Safety Report 20361169 (Version 1)
Quarter: 2022Q1

REPORT INFORMATION
  Report Type: Spontaneous
  Country: US (occurrence: None)
  Receive Date: 20220120
  Receipt Date: 20220120
  Transmission Date: 20220423
  Serious: Yes (Other)
  Sender: FDA-Public Use
  Company Number: None

PATIENT
  Age: 63 Year
  Sex: Female
  Weight: 90 kg

DRUGS (1)
  1. SCOPOLAMINE TRANDERMAL SYSTEM [Suspect]
     Active Substance: SCOPOLAMINE
     Indication: Nausea
     Dosage: OTHER QUANTITY : 1 PATCH;?OTHER FREQUENCY : PATCH;?OTHER ROUTE : APPLIED BEHIND EAR;?
     Route: 050
     Dates: start: 20220113, end: 20220118

REACTIONS (5)
  - Confusional state [None]
  - Somnolence [None]
  - Hallucination [None]
  - Rapid eye movements sleep abnormal [None]
  - Fatigue [None]

NARRATIVE: CASE EVENT DATE: 20220115
